FAERS Safety Report 6420851-1 (Version None)
Quarter: 2009Q4

REPORT INFORMATION
  Report Type: 
  Country: None (occurrence: None)
  Receive Date: 20091030
  Receipt Date: 20091021
  Transmission Date: 20100525
  Serious: Yes (Other)
  Sender: FDA-Public Use
  Company Number: US-WYE-H11063309

PATIENT
  Age: 65 Year
  Sex: Female

DRUGS (5)
  1. PRISTIQ [Suspect]
     Indication: MAJOR DEPRESSION
     Route: 048
  2. RESTORIL [Concomitant]
     Indication: INSOMNIA
  3. LEXAPRO [Concomitant]
     Indication: DEPRESSION
  4. LISINOPRIL [Concomitant]
     Indication: HYPERTENSION
  5. NORVASC [Concomitant]
     Indication: HYPERTENSION

REACTIONS (3)
  - CONDITION AGGRAVATED [None]
  - HALLUCINATION [None]
  - HYPERTENSION [None]
